FAERS Safety Report 16250888 (Version 1)
Quarter: 2019Q2

REPORT INFORMATION
  Report Type: Spontaneous
  Country: US (occurrence: US)
  Receive Date: 20190426
  Receipt Date: 20190426
  Transmission Date: 20190711
  Serious: Yes (Other)
  Sender: FDA-Public Use
  Company Number: None

PATIENT
  Age: 44 Year
  Sex: Female
  Weight: 110.7 kg

DRUGS (2)
  1. HUMAN RABIES VIRUS IMMUNE GLOBULIN [Suspect]
     Active Substance: HUMAN RABIES VIRUS IMMUNE GLOBULIN
  2. RABIES VACCINE NOS [Suspect]
     Active Substance: RABIES VACCINE
     Indication: RABIES IMMUNISATION
     Dosage: ?          QUANTITY:7.4879 MLS;OTHER FREQUENCY:AT 0,3,7,14 DAYS;?
     Route: 030
     Dates: start: 20190421, end: 20190424

REACTIONS (5)
  - Dysphagia [None]
  - Paraesthesia [None]
  - Feeling cold [None]
  - Hypoaesthesia [None]
  - Pain in extremity [None]

NARRATIVE: CASE EVENT DATE: 20190421
